FAERS Safety Report 13177855 (Version 1)
Quarter: 2017Q1

REPORT INFORMATION
  Report Type: Spontaneous
  Country: BR (occurrence: BR)
  Receive Date: 20170201
  Receipt Date: 20170201
  Transmission Date: 20170428
  Serious: Yes (Other)
  Sender: FDA-Public Use
  Company Number: PHHY2017BR012263

PATIENT
  Sex: Male

DRUGS (1)
  1. CIPROFLOXACIN SANDOZ [Suspect]
     Active Substance: CIPROFLOXACIN
     Indication: INFECTION
     Dosage: 500 MG, Q12H
     Route: 048
     Dates: start: 20170121

REACTIONS (4)
  - Cough [Unknown]
  - Hypersensitivity [Unknown]
  - Rash papular [Unknown]
  - Swelling [Unknown]
